FAERS Safety Report 18887123 (Version 1)
Quarter: 2021Q1

REPORT INFORMATION
  Report Type: Report from Study
  Country: US (occurrence: US)
  Receive Date: 20210212
  Receipt Date: 20210212
  Transmission Date: 20210420
  Serious: Yes (Other)
  Sender: FDA-Public Use
  Company Number: US-BIOGEN-2021BI00975486

PATIENT
  Sex: Female

DRUGS (1)
  1. TECFIDERA [Suspect]
     Active Substance: DIMETHYL FUMARATE
     Indication: MULTIPLE SCLEROSIS
     Dosage: 4?5 YEAR IN THERAPY
     Route: 048

REACTIONS (5)
  - Paraesthesia [Unknown]
  - Crying [Unknown]
  - Memory impairment [Unknown]
  - Adjustment disorder with depressed mood [Unknown]
  - Blindness [Unknown]
